FAERS Safety Report 4424792-0 (Version None)
Quarter: 2004Q3

REPORT INFORMATION
  Report Type: 
  Country: None (occurrence: None)
  Receive Date: 20040809
  Receipt Date: 20040727
  Transmission Date: 20050211
  Serious: Yes (Hospitalization)
  Sender: FDA-Public Use
  Company Number: FR-JNJFOC-20040707244

PATIENT
  Age: 76 Year
  Sex: Female

DRUGS (5)
  1. ZALDIAR (TRAMADOL/APAP) TABLETS [Suspect]
     Dosage: ORAL
     Route: 048
     Dates: start: 20040610, end: 20040615
  2. PREVISCAN (FLUINDIONE) [Suspect]
  3. LORAZEPAM [Concomitant]
  4. DIGOXIN [Concomitant]
  5. EFFEXOR [Concomitant]

REACTIONS (4)
  - DRUG INTERACTION [None]
  - HAEMATURIA [None]
  - INTERNATIONAL NORMALISED RATIO INCREASED [None]
  - OVERDOSE [None]
